FAERS Safety Report 6902595-2 (Version None)
Quarter: 2010Q3

REPORT INFORMATION
  Report Type: 
  Country: None (occurrence: None)
  Receive Date: 20100803
  Receipt Date: 20080603
  Transmission Date: 20110219
  Serious: No
  Sender: FDA-Public Use
  Company Number: US-PFIZER INC-2008037705

PATIENT
  Sex: Male
  Weight: 77.1 kg

DRUGS (3)
  1. LYRICA [Suspect]
     Indication: NEURALGIA
  2. LYRICA [Suspect]
     Indication: NECK PAIN
  3. PERCOCET [Concomitant]

REACTIONS (1)
  - DYSPNOEA [None]
